FAERS Safety Report 21855803 (Version 1)
Quarter: 2023Q1

REPORT INFORMATION
  Report Type: Spontaneous
  Country: RU (occurrence: RU)
  Receive Date: 20230112
  Receipt Date: 20230112
  Transmission Date: 20230418
  Serious: Yes (Hospitalization, Other)
  Sender: FDA-Public Use
  Company Number: RU-FreseniusKabi-FK202300165

PATIENT
  Age: 64 Year
  Sex: Female

DRUGS (4)
  1. CARBOPLATIN [Suspect]
     Active Substance: CARBOPLATIN
     Indication: Lung neoplasm malignant
     Dosage: 5 COURSES
     Route: 041
     Dates: start: 20210330, end: 202107
  2. CARBOPLATIN [Suspect]
     Active Substance: CARBOPLATIN
     Dates: start: 202104, end: 202107
  3. PACLITAXEL [Suspect]
     Active Substance: PACLITAXEL
     Indication: Lung neoplasm malignant
     Dosage: 5 COURSES
     Route: 041
     Dates: start: 20210330, end: 202107
  4. PACLITAXEL [Suspect]
     Active Substance: PACLITAXEL
     Dates: start: 202104, end: 202107

REACTIONS (1)
  - Atrial fibrillation [Unknown]
